FAERS Safety Report 13776171 (Version 1)
Quarter: 2017Q3

REPORT INFORMATION
  Report Type: Spontaneous
  Country: US (occurrence: US)
  Receive Date: 20170721
  Receipt Date: 20170721
  Transmission Date: 20171127
  Serious: Yes (Other)
  Sender: FDA-Public Use
  Company Number: US-DRREDDYS-USA/USA/17/0092232

PATIENT
  Age: 13 Year
  Sex: Male

DRUGS (3)
  1. SIROLIMUS. [Suspect]
     Active Substance: SIROLIMUS
     Indication: DISSEMINATED INTRAVASCULAR COAGULATION
  2. SILDENAFIL. [Suspect]
     Active Substance: SILDENAFIL
     Indication: MALFORMATION VENOUS
     Route: 065
  3. SIROLIMUS. [Suspect]
     Active Substance: SIROLIMUS
     Indication: MALFORMATION VENOUS
     Route: 065

REACTIONS (2)
  - Cellulitis [Unknown]
  - Drug ineffective [Unknown]
